FAERS Safety Report 10182058 (Version 2)
Quarter: 2014Q2

REPORT INFORMATION
  Report Type: Report from Study
  Country: US (occurrence: US)
  Receive Date: 20140519
  Receipt Date: 20140527
  Transmission Date: 20141212
  Serious: Yes (Hospitalization)
  Sender: FDA-Public Use
  Company Number: US-BRISTOL-MYERS SQUIBB COMPANY-20731824

PATIENT
  Age: 51 Year
  Sex: Male
  Weight: 97.9 kg

DRUGS (3)
  1. NIVOLUMAB [Suspect]
     Indication: METASTATIC RENAL CELL CARCINOMA
     Dosage: DRUG INTERRUPTED ON 16-APR-2014
     Route: 042
     Dates: start: 20140416
  2. IPILIMUMAB [Suspect]
     Indication: METASTATIC RENAL CELL CARCINOMA
     Dosage: DRUG INTERRUPTED ON 16-APR-2014
     Route: 042
     Dates: start: 20140416
  3. NORMAL SALINE [Concomitant]

REACTIONS (1)
  - Blood creatinine increased [Recovering/Resolving]
